FAERS Safety Report 17974483 (Version 1)
Quarter: 2020Q3

REPORT INFORMATION
  Report Type: Spontaneous
  Country: US (occurrence: US)
  Receive Date: 20200702
  Receipt Date: 20200702
  Transmission Date: 20201103
  Serious: No
  Sender: FDA-Public Use
  Company Number: US-PFIZER INC-2020252060

PATIENT
  Age: 77 Year
  Sex: Female
  Weight: 65.77 kg

DRUGS (1)
  1. IBRANCE [Suspect]
     Active Substance: PALBOCICLIB
     Indication: BREAST CANCER FEMALE
     Dosage: 1 DF, CYCLIC (3 WEEKS AND 1 WEEK OFF)
     Route: 048

REACTIONS (4)
  - Hypoaesthesia [Unknown]
  - Product complaint [Unknown]
  - Poor quality product administered [Unknown]
  - Wrong technique in product usage process [Unknown]
